FAERS Safety Report 7750540-2 (Version None)
Quarter: 2011Q3

REPORT INFORMATION
  Report Type: 
  Country: None (occurrence: None)
  Receive Date: 20110914
  Receipt Date: 20110906
  Transmission Date: 20111222
  Serious: Yes (Hospitalization)
  Sender: FDA-Public Use
  Company Number: CA-JNJFOC-20110903160

PATIENT
  Sex: Female
  Weight: 77 kg

DRUGS (11)
  1. REMICADE [Suspect]
     Indication: ANKYLOSING SPONDYLITIS
     Route: 042
     Dates: start: 20100125
  2. OMEPRAZOLE [Concomitant]
  3. BENZTROPINE MESYLATE [Concomitant]
  4. TYLENOL W/ CODEINE NO. 4 [Concomitant]
  5. SULFASALAZINE [Concomitant]
  6. GABAPENTIN [Concomitant]
  7. BACLOFEN [Concomitant]
  8. ANTI-INFLAMMATORY [Concomitant]
  9. TYLENOL W/ CODEINE NO. 3 [Concomitant]
  10. CELEBREX [Concomitant]
  11. NAPROXEN [Concomitant]

REACTIONS (2)
  - MYOCARDIAL INFARCTION [None]
  - RASH [None]
